FAERS Safety Report 22523640 (Version 1)
Quarter: 2023Q2

REPORT INFORMATION
  Report Type: Spontaneous
  Country: JP (occurrence: None)
  Receive Date: 20230606
  Receipt Date: 20230606
  Transmission Date: 20230722
  Serious: Yes (Other)
  Sender: FDA-Public Use
  Company Number: 2023A127804

PATIENT
  Age: 66 Year
  Sex: Male

DRUGS (1)
  1. LYNPARZA [Suspect]
     Active Substance: OLAPARIB
     Indication: Hormone-refractory prostate cancer
     Dosage: NUMBER OF DIVIDED DOSES UNKNOWN
     Route: 048
     Dates: start: 2022, end: 2023

REACTIONS (1)
  - Malignant neoplasm progression [Unknown]
